FAERS Safety Report 6267872-X (Version None)
Quarter: 2009Q3

REPORT INFORMATION
  Report Type: 
  Country: None (occurrence: None)
  Receive Date: 20090714
  Receipt Date: 20090708
  Transmission Date: 20100115
  Serious: Yes (Hospitalization)
  Sender: FDA-Public Use
  Company Number: FR-ABBOTT-09P-056-0584319-00

PATIENT
  Sex: Female

DRUGS (5)
  1. MONOZECLAR TABLETS [Suspect]
     Indication: BRONCHITIS
     Route: 048
     Dates: start: 20090604, end: 20090604
  2. TOPLEXIL [Suspect]
     Indication: BRONCHITIS
     Route: 048
     Dates: start: 20090525, end: 20090623
  3. CELESTAMINE TAB [Suspect]
     Indication: BRONCHITIS
     Route: 048
     Dates: start: 20090529, end: 20090603
  4. ATURGYL [Suspect]
     Indication: DRUG USE FOR UNKNOWN INDICATION
     Dates: start: 20090529, end: 20090603
  5. KESTIN [Suspect]
     Indication: DRUG USE FOR UNKNOWN INDICATION
     Dates: start: 20090604

REACTIONS (4)
  - EOSINOPHILIA [None]
  - THROMBOCYTOPENIA [None]
  - THROMBOCYTOPENIC PURPURA [None]
  - URTICARIA [None]
